FAERS Safety Report 10225851 (Version 1)
Quarter: 2014Q2

REPORT INFORMATION
  Report Type: Spontaneous
  Country: US (occurrence: US)
  Receive Date: 20140609
  Receipt Date: 20140609
  Transmission Date: 20141212
  Serious: Yes (Hospitalization, Other)
  Sender: FDA-Public Use
  Company Number: US-TARO-2014P1004680

PATIENT
  Age: 63 Year
  Sex: Male
  Weight: 69.85 kg

DRUGS (7)
  1. HYDROCORTISONE CREAM USP 2.5% [Suspect]
     Indication: RASH
     Route: 061
     Dates: start: 20121122, end: 2013
  2. HYDROCORTISONE CREAM USP 2.5% [Suspect]
     Indication: RASH
     Route: 061
     Dates: start: 201403
  3. FLUOCINONIDE TOPICAL SOLUTION USP 0.05% [Suspect]
     Indication: RASH
     Route: 061
     Dates: start: 2013
  4. ULTRAM 50 [Concomitant]
  5. COMBIVENT [Concomitant]
     Route: 055
     Dates: start: 2012
  6. ANTIPSYCHOTIC MEDICATIONS (UNSPECIFIED) [Concomitant]
  7. CRESTOR [Concomitant]

REACTIONS (10)
  - Rash [Unknown]
  - Application site pain [Unknown]
  - Hypersensitivity [Unknown]
  - Biopsy skin abnormal [Unknown]
  - Thrombosis [Unknown]
  - Intracardiac thrombus [Unknown]
  - Myocardial infarction [Unknown]
  - Insomnia [Unknown]
  - Mass [None]
  - Condition aggravated [None]
